FAERS Safety Report 10789024 (Version 4)
Quarter: 2015Q4

REPORT INFORMATION
  Report Type: Spontaneous
  Country: US (occurrence: US)
  Receive Date: 20150212
  Receipt Date: 20151029
  Transmission Date: 20160304
  Serious: Yes (Hospitalization, Other)
  Sender: FDA-Public Use
  Company Number: US-BAYER-2015-020190

PATIENT
  Age: 33 Year
  Sex: Female
  Weight: 61.22 kg

DRUGS (5)
  1. MICRONOR [Concomitant]
     Active Substance: NORETHINDRONE
     Dosage: 0.35 MG, QD
     Dates: start: 20130530
  2. NUVARING [Concomitant]
     Active Substance: ETHINYL ESTRADIOL\ETONOGESTREL
  3. MIRENA [Suspect]
     Active Substance: LEVONORGESTREL
     Indication: CONTRACEPTION
     Dosage: 20 MCG/24HR, CONT
     Route: 015
     Dates: start: 20120119, end: 20130604
  4. DEPO-PROVERA [Concomitant]
     Active Substance: MEDROXYPROGESTERONE ACETATE
  5. PRENATAL VITAMINS [Concomitant]
     Active Substance: VITAMINS

REACTIONS (18)
  - Genital haemorrhage [None]
  - Procedural pain [None]
  - Pelvic pain [None]
  - Emotional distress [None]
  - Depression [None]
  - Drug ineffective [None]
  - Post procedural haemorrhage [None]
  - Fear [None]
  - Uterine perforation [None]
  - Pregnancy with contraceptive device [None]
  - Abortion spontaneous [None]
  - Injury [None]
  - Abdominal pain [None]
  - Internal injury [None]
  - Depressed mood [None]
  - Anxiety [None]
  - Medical device discomfort [None]
  - Device issue [None]

NARRATIVE: CASE EVENT DATE: 201201
